FAERS Safety Report 25995328 (Version 1)
Quarter: 2025Q4

REPORT INFORMATION
  Report Type: Spontaneous
  Country: EU (occurrence: EU)
  Receive Date: 20251104
  Receipt Date: 20251104
  Transmission Date: 20260117
  Serious: Yes (Hospitalization)
  Sender: MYLAN
  Company Number: None

PATIENT
  Age: 63 Year
  Sex: Female
  Weight: 80.4 kg

DRUGS (20)
  1. METHOTREXATE [Suspect]
     Active Substance: METHOTREXATE
     Indication: Chronic lymphocytic leukaemia stage 4
     Dosage: 2000 MILLIGRAM, TOTAL
     Dates: start: 20250715, end: 20250715
  2. METHOTREXATE [Suspect]
     Active Substance: METHOTREXATE
     Dosage: 2000 MILLIGRAM, TOTAL
     Dates: start: 20250715, end: 20250715
  3. METHOTREXATE [Suspect]
     Active Substance: METHOTREXATE
     Dosage: 2000 MILLIGRAM, TOTAL
     Route: 042
     Dates: start: 20250715, end: 20250715
  4. METHOTREXATE [Suspect]
     Active Substance: METHOTREXATE
     Dosage: 2000 MILLIGRAM, TOTAL
     Route: 042
     Dates: start: 20250715, end: 20250715
  5. METHOTREXATE [Suspect]
     Active Substance: METHOTREXATE
     Dosage: 15 MILLIGRAM, TOTAL
     Dates: start: 20250718, end: 20250718
  6. METHOTREXATE [Suspect]
     Active Substance: METHOTREXATE
     Dosage: 15 MILLIGRAM, TOTAL
     Dates: start: 20250718, end: 20250718
  7. METHOTREXATE [Suspect]
     Active Substance: METHOTREXATE
     Dosage: 15 MILLIGRAM, TOTAL
     Route: 037
     Dates: start: 20250718, end: 20250718
  8. METHOTREXATE [Suspect]
     Active Substance: METHOTREXATE
     Dosage: 15 MILLIGRAM, TOTAL
     Route: 037
     Dates: start: 20250718, end: 20250718
  9. CYTARABINE [Suspect]
     Active Substance: CYTARABINE
     Indication: Chronic lymphocytic leukaemia stage 4
     Dosage: 6050 MILLIGRAM, BID
     Dates: start: 20250716, end: 20250717
  10. CYTARABINE [Suspect]
     Active Substance: CYTARABINE
     Dosage: 6050 MILLIGRAM, BID
     Dates: start: 20250716, end: 20250717
  11. CYTARABINE [Suspect]
     Active Substance: CYTARABINE
     Dosage: 6050 MILLIGRAM, BID
     Route: 042
     Dates: start: 20250716, end: 20250717
  12. CYTARABINE [Suspect]
     Active Substance: CYTARABINE
     Dosage: 6050 MILLIGRAM, BID
     Route: 042
     Dates: start: 20250716, end: 20250717
  13. CYTARABINE [Suspect]
     Active Substance: CYTARABINE
     Dosage: 40 MILLIGRAM, TOTAL
     Dates: start: 20250718, end: 20250718
  14. CYTARABINE [Suspect]
     Active Substance: CYTARABINE
     Dosage: 40 MILLIGRAM, TOTAL
     Dates: start: 20250718, end: 20250718
  15. CYTARABINE [Suspect]
     Active Substance: CYTARABINE
     Dosage: 40 MILLIGRAM, TOTAL
     Route: 037
     Dates: start: 20250718, end: 20250718
  16. CYTARABINE [Suspect]
     Active Substance: CYTARABINE
     Dosage: 40 MILLIGRAM, TOTAL
     Route: 037
     Dates: start: 20250718, end: 20250718
  17. ICLUSIG [Suspect]
     Active Substance: PONATINIB HYDROCHLORIDE
     Indication: Chronic lymphocytic leukaemia stage 4
     Dosage: 30 MILLIGRAM, QD
  18. ICLUSIG [Suspect]
     Active Substance: PONATINIB HYDROCHLORIDE
     Dosage: 30 MILLIGRAM, QD
     Route: 048
  19. ICLUSIG [Suspect]
     Active Substance: PONATINIB HYDROCHLORIDE
     Dosage: 30 MILLIGRAM, QD
     Route: 048
  20. ICLUSIG [Suspect]
     Active Substance: PONATINIB HYDROCHLORIDE
     Dosage: 30 MILLIGRAM, QD

REACTIONS (3)
  - Peripheral motor neuropathy [Not Recovered/Not Resolved]
  - Peripheral sensory neuropathy [Not Recovered/Not Resolved]
  - Paraparesis [Not Recovered/Not Resolved]

NARRATIVE: CASE EVENT DATE: 20250808
